FAERS Safety Report 21935778 (Version 3)
Quarter: 2023Q1

REPORT INFORMATION
  Report Type: Report from Study
  Country: TR (occurrence: None)
  Receive Date: 20230201
  Receipt Date: 20230228
  Transmission Date: 20230417
  Serious: Yes (Other)
  Sender: FDA-Public Use
  Company Number: TR-ROCHE-3272943

PATIENT
  Age: 54 Year
  Sex: Male

DRUGS (7)
  1. FARICIMAB [Suspect]
     Active Substance: FARICIMAB
     Indication: Diabetic retinal oedema
     Dosage: ON 07/JAN/2022 DATE OF FIRST OPEN LABEL FARICIMAB., ON 13/JAN/2023 3:30 PM START DATE OF MOST RECENT
     Route: 050
     Dates: start: 20210901
  2. AFLIBERCEPT [Suspect]
     Active Substance: AFLIBERCEPT
     Indication: Diabetic retinal oedema
     Dosage: ON 13/JAN/2023 START AND END DATE OF MOST RECENT DOSE OF AFLIBERCEPT PRIOR TO AE/SAE. DOSE LAST AFLI
     Route: 050
     Dates: start: 20211019
  3. INSULIN NOS [Concomitant]
     Active Substance: INSULIN NOS
     Indication: Diabetes mellitus
     Route: 058
     Dates: start: 2012
  4. METFORMIN [Concomitant]
     Active Substance: METFORMIN HYDROCHLORIDE
     Route: 048
     Dates: start: 2004
  5. DELIX [Concomitant]
     Indication: Hypertension
     Route: 048
     Dates: start: 20200310
  6. VILDAGLIPTIN [Concomitant]
     Active Substance: VILDAGLIPTIN
     Indication: Diabetes mellitus
     Route: 048
     Dates: start: 20200310
  7. RABELIS [Concomitant]
     Indication: Diabetes mellitus
     Route: 048
     Dates: start: 20200310

REACTIONS (1)
  - Retinal detachment [Recovering/Resolving]

NARRATIVE: CASE EVENT DATE: 20230123
